FAERS Safety Report 6625588-1 (Version None)
Quarter: 2010Q1

REPORT INFORMATION
  Report Type: 
  Country: None (occurrence: None)
  Receive Date: 20100310
  Receipt Date: 20100304
  Transmission Date: 20100710
  Serious: Yes (Hospitalization)
  Sender: FDA-Public Use
  Company Number: US-RB-004033-10

PATIENT
  Age: 49 Year
  Sex: Male

DRUGS (4)
  1. SUBOXONE [Suspect]
     Route: 060
     Dates: start: 20090101
  2. ZOMIG [Suspect]
     Indication: MIGRAINE
     Dosage: UNKNOWN DOSING DETAILS
     Route: 048
     Dates: end: 20091101
  3. CELEXA [Concomitant]
     Indication: DEPRESSION
     Dosage: DAILY DOSE KNOWN, UNIT DOSE AND FREQUENCY UNKNOWN
     Route: 065
  4. INDERAL [Concomitant]
     Indication: MIGRAINE
     Dosage: DAILY DOSE KNOWN, UNIT DOSE AND FREQUENCY UNKNOWN
     Route: 065

REACTIONS (1)
  - MYOCARDIAL INFARCTION [None]
